FAERS Safety Report 6495740-7 (Version None)
Quarter: 2009Q4

REPORT INFORMATION
  Report Type: 
  Country: None (occurrence: None)
  Receive Date: 20091214
  Receipt Date: 20090806
  Transmission Date: 20100525
  Serious: No
  Sender: FDA-Public Use
  Company Number: US-BRISTOL-MYERS SQUIBB COMPANY-14731889

PATIENT
  Age: 55 Year
  Sex: Male

DRUGS (3)
  1. ABILIFY [Suspect]
     Indication: BIPOLAR DISORDER
     Dosage: INITATED WITH 2.5MG AND THEN INCREASED TO 10 MG RESTARTED ON JUN09
  2. PROZAC [Concomitant]
  3. AMBIEN [Concomitant]

REACTIONS (1)
  - BLOOD GLUCOSE INCREASED [None]
